FAERS Safety Report 9700089 (Version 1)
Quarter: 2013Q4

REPORT INFORMATION
  Report Type: Spontaneous
  Country: US (occurrence: US)
  Receive Date: 20131121
  Receipt Date: 20131121
  Transmission Date: 20140711
  Serious: Yes (Hospitalization)
  Sender: FDA-Public Use
  Company Number: US-JNJFOC-20131104355

PATIENT
  Age: 57 Year
  Sex: Female
  Weight: 88.45 kg

DRUGS (4)
  1. TYLENOL [Suspect]
     Route: 065
  2. TYLENOL [Suspect]
     Indication: NONSPECIFIC REACTION
     Route: 065
     Dates: start: 201310
  3. SOLUMEDROL (METHYLPREDNISOLONE SODIUM SUCCINATE) [Concomitant]
     Indication: NONSPECIFIC REACTION
     Route: 065
     Dates: start: 201310
  4. BENADRYL [Concomitant]
     Indication: NONSPECIFIC REACTION
     Route: 042
     Dates: start: 201310

REACTIONS (1)
  - Drug ineffective for unapproved indication [Unknown]
